FAERS Safety Report 11150913 (Version 3)
Quarter: 2015Q3

REPORT INFORMATION
  Report Type: Spontaneous
  Country: US (occurrence: US)
  Receive Date: 20150601
  Receipt Date: 20150706
  Transmission Date: 20151125
  Serious: No
  Sender: FDA-Public Use
  Company Number: US-ASTRAZENECA-2015SE50921

PATIENT
  Age: 72 Year
  Sex: Male
  Weight: 56.7 kg

DRUGS (4)
  1. LEVAMIR [Concomitant]
     Indication: DIABETES MELLITUS
     Route: 065
     Dates: start: 2008
  2. PRANDIN [Concomitant]
     Active Substance: REPAGLINIDE
     Indication: DIABETES MELLITUS
     Route: 048
     Dates: start: 2008
  3. PULMICORT TURBUHALER [Suspect]
     Active Substance: BUDESONIDE
     Indication: ASTHMA
     Dosage: 90 UG, 1 PUFF BID
     Route: 055
     Dates: start: 201503
  4. JANUMET [Concomitant]
     Active Substance: METFORMIN HYDROCHLORIDE\SITAGLIPTIN PHOSPHATE
     Indication: DIABETES MELLITUS
     Dosage: 2-1000 MG QD
     Route: 048
     Dates: start: 2008

REACTIONS (7)
  - Drug dose omission [Unknown]
  - Device malfunction [Unknown]
  - Cough [Not Recovered/Not Resolved]
  - Drug ineffective [Unknown]
  - Intentional product misuse [Unknown]
  - Circumstance or information capable of leading to medication error [Unknown]
  - Dyspnoea [Not Recovered/Not Resolved]

NARRATIVE: CASE EVENT DATE: 2015
